FAERS Safety Report 7110345-2 (Version None)
Quarter: 2010Q4

REPORT INFORMATION
  Report Type: 
  Country: None (occurrence: None)
  Receive Date: 20101118
  Receipt Date: 20101116
  Transmission Date: 20110411
  Serious: Yes (Other)
  Sender: FDA-Public Use
  Company Number: US-PFIZER INC-2010102472

PATIENT
  Sex: Male

DRUGS (3)
  1. CHANTIX [Suspect]
     Indication: SMOKING CESSATION THERAPY
     Dosage: UNK
     Dates: start: 20080717, end: 20080801
  2. KLONOPIN [Concomitant]
     Indication: ANXIETY
     Dosage: UNK
     Dates: start: 19990101, end: 20100101
  3. CIPROFLOXACIN [Concomitant]
     Indication: EAR INFECTION
     Dosage: UNK
     Dates: start: 19800101, end: 20100101

REACTIONS (2)
  - ANXIETY [None]
  - DEPRESSION [None]
